FAERS Safety Report 16780208 (Version 1)
Quarter: 2019Q3

REPORT INFORMATION
  Report Type: Report from Study
  Country: None (occurrence: GB)
  Receive Date: 20190906
  Receipt Date: 20190906
  Transmission Date: 20191005
  Serious: Yes (Hospitalization)
  Sender: FDA-Public Use
  Company Number: GB-ABBVIE-19K-167-2911907-00

PATIENT
  Age: 78 Year
  Sex: Female

DRUGS (2)
  1. HUMIRA [Suspect]
     Active Substance: ADALIMUMAB
     Indication: RHEUMATOID ARTHRITIS
     Route: 058
     Dates: start: 20170205, end: 201805
  2. LEFLUNOMIDE. [Concomitant]
     Active Substance: LEFLUNOMIDE
     Indication: PRODUCT USED FOR UNKNOWN INDICATION
     Route: 065
     Dates: start: 20180718, end: 20180815

REACTIONS (11)
  - Fall [Unknown]
  - Anal incontinence [Unknown]
  - Decreased appetite [Not Recovered/Not Resolved]
  - Acute kidney injury [Unknown]
  - Hypophagia [Unknown]
  - Depression [Unknown]
  - Depressed mood [Unknown]
  - Urinary tract infection [Unknown]
  - Haemorrhoids [Unknown]
  - Constipation [Unknown]
  - Back pain [Unknown]

NARRATIVE: CASE EVENT DATE: 20180728
